FAERS Safety Report 15211322 (Version 1)
Quarter: 2018Q3

REPORT INFORMATION
  Report Type: Spontaneous
  Country: US (occurrence: US)
  Receive Date: 20180629
  Receipt Date: 20180629
  Transmission Date: 20181010
  Serious: Yes (Hospitalization)
  Sender: FDA-Public Use
  Company Number: None

PATIENT
  Age: 66 Year
  Sex: Female

DRUGS (18)
  1. GAS?X [Concomitant]
     Active Substance: DIMETHICONE
  2. FOLIC ACID. [Concomitant]
     Active Substance: FOLIC ACID
  3. GABAPENTIN. [Suspect]
     Active Substance: GABAPENTIN
  4. PLAQUENIL [Concomitant]
     Active Substance: HYDROXYCHLOROQUINE SULFATE
  5. XELJANZ XR [Suspect]
     Active Substance: TOFACITINIB CITRATE
     Route: 048
     Dates: start: 20180607
  6. GINGKO BILOB [Concomitant]
  7. MULTI50+ [Concomitant]
  8. SERTRALINE [Concomitant]
     Active Substance: SERTRALINE HYDROCHLORIDE
  9. ETODOLAC. [Concomitant]
     Active Substance: ETODOLAC
  10. METFORMIN [Concomitant]
     Active Substance: METFORMIN HYDROCHLORIDE
  11. VITAMIN D [Concomitant]
     Active Substance: CHOLECALCIFEROL
  12. ACETAMIN [Concomitant]
     Active Substance: ACETAMINOPHEN
  13. PROTONIX [Concomitant]
     Active Substance: PANTOPRAZOLE SODIUM
  14. CALCIUM D [Concomitant]
     Active Substance: CALCIUM\VITAMIN D
  15. COZAAR [Concomitant]
     Active Substance: LOSARTAN POTASSIUM
  16. METHOTEXATE [Concomitant]
  17. VITAMIN C [Concomitant]
     Active Substance: ASCORBIC ACID
  18. VITAMIN B12 [Concomitant]
     Active Substance: CYANOCOBALAMIN

REACTIONS (1)
  - Knee arthroplasty [None]

NARRATIVE: CASE EVENT DATE: 20180619
